FAERS Safety Report 5956578-X (Version None)
Quarter: 2008Q4

REPORT INFORMATION
  Report Type: 
  Country: None (occurrence: None)
  Receive Date: 20081118
  Receipt Date: 20081106
  Transmission Date: 20090506
  Serious: Yes (Hospitalization, Other)
  Sender: FDA-Public Use
  Company Number: FR-JNJFOC-20080701930

PATIENT
  Age: 27 Year
  Sex: Male

DRUGS (2)
  1. INFLIXIMAB [Suspect]
     Route: 042
  2. INFLIXIMAB [Suspect]
     Indication: ANKYLOSING SPONDYLITIS
     Dosage: 11 INFUSIONS BETWEEN 2002 AND 2003
     Route: 042

REACTIONS (2)
  - ANKYLOSING SPONDYLITIS [None]
  - SARCOIDOSIS [None]
